FAERS Safety Report 19389521 (Version 1)
Quarter: 2021Q2

REPORT INFORMATION
  Report Type: Spontaneous
  Country: US (occurrence: US)
  Receive Date: 20210608
  Receipt Date: 20210608
  Transmission Date: 20210717
  Serious: Yes (Life-Threatening, Hospitalization)
  Sender: FDA-Public Use
  Company Number: US-PFIZER INC-2021626633

PATIENT
  Age: 61 Year
  Sex: Female

DRUGS (4)
  1. EPINEPHRINE. [Suspect]
     Active Substance: EPINEPHRINE
     Indication: ANGIOEDEMA
     Dosage: UNK
     Route: 030
  2. METHYLPREDNISOLONE. [Concomitant]
     Active Substance: METHYLPREDNISOLONE
     Indication: ANGIOEDEMA
     Dosage: UNK
     Route: 042
  3. DIPHENHYDRAMIN [Concomitant]
     Active Substance: DIPHENHYDRAMINE
     Indication: ANGIOEDEMA
     Dosage: UNK
     Route: 042
  4. FAMOTIDINE. [Concomitant]
     Active Substance: FAMOTIDINE
     Indication: ANGIOEDEMA
     Dosage: UNK
     Route: 042

REACTIONS (1)
  - Stress cardiomyopathy [Recovered/Resolved]
